FAERS Safety Report 6779767-3 (Version None)
Quarter: 2010Q2

REPORT INFORMATION
  Report Type: 
  Country: None (occurrence: None)
  Receive Date: 20100618
  Receipt Date: 20100610
  Transmission Date: 20101027
  Serious: Yes (Hospitalization)
  Sender: FDA-Public Use
  Company Number: US-JNJFOC-20100500532

PATIENT
  Sex: Female
  Weight: 54 kg

DRUGS (24)
  1. FENTANYL [Suspect]
     Indication: PAIN
     Route: 062
  2. HALOPERIDOL [Suspect]
     Indication: DEPRESSION
     Route: 065
  3. IMC-3G3 (RH ANTI-PDGFRA MAB) [Suspect]
     Indication: OVARIAN CANCER
     Route: 042
  4. LIPOSOMAL DOXORUBICIN (DOXORUBICIN HYDROCHLORIDE) [Suspect]
     Indication: OVARIAN CANCER
     Route: 042
  5. LORAZEPAM [Suspect]
     Indication: DEPRESSION
     Route: 065
  6. FLUOXETINE HYDROCHLORIDE [Suspect]
     Indication: DEPRESSION
     Route: 065
  7. MORPHINE [Suspect]
     Indication: PAIN
     Route: 065
  8. TRAZODONE HYDROCHLORIDE [Suspect]
     Indication: DEPRESSION
     Route: 065
  9. ONDANSETRON [Suspect]
     Indication: VOMITING
     Route: 065
  10. ESCITALOPRAM [Suspect]
     Indication: DEPRESSION
     Route: 065
  11. DIAZEPAM [Suspect]
     Indication: DEPRESSION
     Route: 065
  12. PAROXETINE HCL [Concomitant]
     Indication: DEPRESSION
     Route: 065
  13. NULYTELY [Concomitant]
     Indication: CONSTIPATION PROPHYLAXIS
     Route: 065
  14. ENOXAPARIN SODIUM [Concomitant]
     Indication: HAEMOSTASIS
     Route: 065
  15. COTRIM [Concomitant]
     Indication: DEVICE RELATED INFECTION
     Route: 065
  16. HYDROCORTISONE [Concomitant]
     Indication: PAIN
     Route: 065
  17. DEXAMETHASONE [Concomitant]
     Indication: PAIN
     Route: 065
  18. OMEPRAZOLE [Concomitant]
     Indication: GASTRITIS
     Route: 065
  19. ACETAMINOPHEN [Concomitant]
     Indication: PYREXIA
     Route: 065
  20. AUGMENTIN '125' [Concomitant]
     Indication: PYREXIA
     Route: 065
  21. UROKINASE [Concomitant]
     Indication: HAEMOSTASIS
     Route: 065
  22. BLOOD TRANSFUSION [Concomitant]
     Indication: HAEMOGLOBIN DECREASED
     Route: 042
  23. METOCLOPRAMIDE [Concomitant]
     Indication: PROPHYLAXIS OF NAUSEA AND VOMITING
     Route: 065
  24. DOMPERIDONE [Concomitant]
     Indication: PROPHYLAXIS OF NAUSEA AND VOMITING
     Route: 065

REACTIONS (5)
  - BRADYPHRENIA [None]
  - PSEUDOMONAS INFECTION [None]
  - PYREXIA [None]
  - SOMNOLENCE [None]
  - STAPHYLOCOCCAL INFECTION [None]
